FAERS Safety Report 7794064-5 (Version None)
Quarter: 2011Q4

REPORT INFORMATION
  Report Type: 
  Country: None (occurrence: None)
  Receive Date: 20111004
  Receipt Date: 20110922
  Transmission Date: 20120403
  Serious: Yes (Hospitalization)
  Sender: FDA-Public Use
  Company Number: JP-JNJFOC-20110910588

PATIENT
  Age: 69 Year
  Sex: Male
  Weight: 42 kg

DRUGS (3)
  1. RHEUMATREX [Suspect]
     Route: 048
     Dates: start: 20110615, end: 20110625
  2. REMICADE [Suspect]
     Indication: RHEUMATOID ARTHRITIS
     Route: 042
     Dates: start: 20110615
  3. RHEUMATREX [Suspect]
     Indication: RHEUMATOID ARTHRITIS
     Route: 048
     Dates: start: 20110521, end: 20110614

REACTIONS (3)
  - ASTHENIA [None]
  - PNEUMONIA [None]
  - PLATELET COUNT DECREASED [None]
